FAERS Safety Report 6920979-3 (Version None)
Quarter: 2010Q3

REPORT INFORMATION
  Report Type: 
  Country: None (occurrence: None)
  Receive Date: 20100812
  Receipt Date: 20100802
  Transmission Date: 20110219
  Serious: Yes (Other)
  Sender: FDA-Public Use
  Company Number: BR-WATSON-2010-10536

PATIENT
  Age: 42 Year
  Sex: Male

DRUGS (1)
  1. ALORA [Suspect]
     Indication: HORMONE THERAPY
     Dosage: 10 MG IM EVERY 15 DAYS

REACTIONS (4)
  - BLOOD PROLACTIN INCREASED [None]
  - GALACTORRHOEA [None]
  - GYNAECOMASTIA [None]
  - PROLACTINOMA [None]
